FAERS Safety Report 22620584 (Version 1)
Quarter: 2023Q2

REPORT INFORMATION
  Report Type: Spontaneous
  Country: HR (occurrence: HR)
  Receive Date: 20230620
  Receipt Date: 20230620
  Transmission Date: 20230721
  Serious: Yes (Other)
  Sender: FDA-Public Use
  Company Number: HR-PFIZER INC-PV202300105684

PATIENT
  Age: 6 Year
  Sex: Female

DRUGS (2)
  1. ENBREL [Suspect]
     Active Substance: ETANERCEPT
     Indication: Juvenile idiopathic arthritis
     Dosage: UNK
     Route: 065
     Dates: start: 201107
  2. ENBREL [Suspect]
     Active Substance: ETANERCEPT
     Indication: Uveitis
     Dosage: UNK
     Route: 065

REACTIONS (4)
  - Glaucoma [Unknown]
  - Cataract [Unknown]
  - Condition aggravated [Recovered/Resolved]
  - Uveitis [Recovered/Resolved]

NARRATIVE: CASE EVENT DATE: 20120101
